FAERS Safety Report 4569204-1 (Version None)
Quarter: 2005Q1

REPORT INFORMATION
  Report Type: 
  Country: None (occurrence: None)
  Receive Date: 20050203
  Receipt Date: 20050126
  Transmission Date: 20050727
  Serious: Yes (Hospitalization)
  Sender: FDA-Public Use
  Company Number: JP-BRISTOL-MYERS SQUIBB COMPANY-12841219

PATIENT
  Age: 79 Year
  Sex: Female

DRUGS (5)
  1. MEVALOTIN [Suspect]
     Indication: HYPERLIPIDAEMIA
     Dosage: 2 X 10 MG DAILY FROM 17-JUN-1994 UNTIL AN UNSPECIFIED DATE
     Route: 048
     Dates: start: 20020119, end: 20040723
  2. ENCERON [Concomitant]
  3. MAGNESIUM OXIDE [Concomitant]
  4. RILYFTER [Concomitant]
  5. ZEPOLAS [Concomitant]

REACTIONS (2)
  - PYELONEPHRITIS ACUTE [None]
  - RHABDOMYOLYSIS [None]
